FAERS Safety Report 5297538-4 (Version None)
Quarter: 2007Q2

REPORT INFORMATION
  Report Type: 
  Country: None (occurrence: None)
  Receive Date: 20070416
  Receipt Date: 20070402
  Transmission Date: 20071010
  Serious: Yes (Hospitalization)
  Sender: FDA-Public Use
  Company Number: PHEH2007US03894

PATIENT
  Age: 33 Year
  Sex: Female

DRUGS (3)
  1. ZELNORM [Suspect]
     Indication: IRRITABLE BOWEL SYNDROME
     Dosage: 6 MG, BID
     Route: 048
     Dates: start: 20050101, end: 20070301
  2. SINGULAIR [Concomitant]
     Indication: ASTHMA
  3. CYMBALTA [Concomitant]
     Indication: DEPRESSION

REACTIONS (6)
  - ASTHENIA [None]
  - CHEST PAIN [None]
  - HEART RATE INCREASED [None]
  - IRRITABLE BOWEL SYNDROME [None]
  - RASH [None]
  - SCAR [None]
